FAERS Safety Report 14938270 (Version 2)
Quarter: 2018Q4

REPORT INFORMATION
  Report Type: Spontaneous
  Country: GB (occurrence: GB)
  Receive Date: 20180525
  Receipt Date: 20181025
  Transmission Date: 20190204
  Serious: Yes (Hospitalization)
  Sender: FDA-Public Use
  Company Number: GB-BAUSCH-BL-2018-014834

PATIENT
  Sex: Female

DRUGS (4)
  1. PHENYLEPHRINE HYDROCHLORIDE OPHTHALMIC [Suspect]
     Active Substance: PHENYLEPHRINE HYDROCHLORIDE
     Indication: PREOPERATIVE CARE
     Route: 065
     Dates: start: 20180421
  2. MINIMS CYCLOPENTOLATE HYDROCHLORIDE 1.0%  W/V EYE DROPS, SOLUTION [Suspect]
     Active Substance: CYCLOPENTOLATE HYDROCHLORIDE
     Indication: PREOPERATIVE CARE
     Route: 065
     Dates: start: 20180421
  3. MINIMS PROXYMETACAINE HYDROCHLORIDE 0.5 % W/V EYE DROPS, SOLUTION [Suspect]
     Active Substance: PROPARACAINE HYDROCHLORIDE
     Indication: PREOPERATIVE CARE
     Route: 065
     Dates: start: 20180421
  4. MINIMS ARTIFICIAL TEARS EYE DROPS SOLUTION [Suspect]
     Active Substance: HYDROXYETHYL CELLULOSE\SODIUM CHLORIDE
     Indication: PREOPERATIVE CARE
     Dosage: STARTED YEARS AGO
     Route: 065

REACTIONS (3)
  - Eye pain [Recovered/Resolved]
  - Eye discharge [Unknown]
  - Cataract [Unknown]

NARRATIVE: CASE EVENT DATE: 20180421
